FAERS Safety Report 6676603-0 (Version None)
Quarter: 2010Q2

REPORT INFORMATION
  Report Type: 
  Country: None (occurrence: None)
  Receive Date: 20100412
  Receipt Date: 20100302
  Transmission Date: 20101027
  Serious: Yes (Other)
  Sender: FDA-Public Use
  Company Number: PHHY2010PT04874

PATIENT
  Sex: Female

DRUGS (15)
  1. ACLASTA [Suspect]
     Indication: OSTEOPOROSIS
     Dosage: UNK
     Route: 042
     Dates: start: 20090511
  2. CALCIUM [Concomitant]
     Indication: OSTEOPOROSIS
     Dosage: 1500 MG+ 40 UI
     Dates: start: 20080101
  3. ACE INHIBITORS AND DIURETICS [Concomitant]
  4. PANTOPRAZOLE [Concomitant]
     Dosage: 40 MG
     Dates: start: 20090103
  5. FLUOXETINE [Concomitant]
     Indication: DEPRESSION
     Dosage: 20 MG
     Dates: start: 20090511
  6. GLUCOSAMINE [Concomitant]
     Indication: BONE DISORDER
     Dosage: 625 MG
     Dates: start: 20090205
  7. SIMVASTATIN [Concomitant]
     Indication: DYSLIPIDAEMIA
     Dosage: 20 MG
     Dates: start: 20090205
  8. LISINOPRIL AND HYDROCHLOROTHIAZIDE [Concomitant]
     Indication: HYPERTENSION
     Dosage: UNK
     Dates: start: 20090205
  9. NIFEDIPINE [Concomitant]
     Indication: HYPERTENSION
     Dosage: UNK
     Dates: start: 20081120
  10. LORAZEPAM [Concomitant]
     Indication: ANXIETY
     Dosage: 1 MG
     Dates: start: 20080520
  11. TRIMETAZIDINE [Concomitant]
     Dosage: 35 MG
     Dates: start: 20080101
  12. BETAHISTINE HYDROCHLORIDE [Concomitant]
     Indication: VERTIGO
     Dosage: 24 MG
     Dates: start: 20080101
  13. ISOSORBIDE DINITRATE [Concomitant]
     Indication: CORONARY ARTERY DISEASE
     Dosage: UNK
     Dates: start: 20070101
  14. BETAXOLOL [Concomitant]
     Indication: GLAUCOMA
     Dosage: UNK
     Route: 031
     Dates: start: 20070101
  15. BRINZOLAMIDE [Concomitant]
     Indication: GLAUCOMA
     Dosage: UNK
     Route: 031
     Dates: start: 20070101

REACTIONS (4)
  - BACK PAIN [None]
  - BLOOD PRESSURE DIASTOLIC DECREASED [None]
  - FLANK PAIN [None]
  - NEPHROLITHIASIS [None]
